FAERS Safety Report 13580241 (Version 2)
Quarter: 2017Q2

REPORT INFORMATION
  Report Type: Report from Study
  Country: DE (occurrence: DE)
  Receive Date: 20170525
  Receipt Date: 20170605
  Transmission Date: 20170830
  Serious: Yes (Other)
  Sender: FDA-Public Use
  Company Number: DE-AMGEN-DEUSL2017077772

PATIENT
  Age: 55 Year
  Sex: Male
  Weight: 87 kg

DRUGS (5)
  1. IRINOTECAN [Suspect]
     Active Substance: IRINOTECAN
     Indication: COLON CANCER
     Dosage: 180 MG/M2, DAY 1
     Route: 065
     Dates: start: 20170424
  2. FLUOROURACIL. [Concomitant]
     Active Substance: FLUOROURACIL
     Indication: COLON CANCER
     Dosage: 400 MG/M2, DAY 1
     Route: 040
     Dates: start: 20170424
  3. NATRIUMFOLINAT [Concomitant]
     Active Substance: FOLATE SODIUM
     Indication: COLON CANCER
     Dosage: 400 MG/M2, DAY 1
     Dates: start: 20170424
  4. VECTIBIX [Suspect]
     Active Substance: PANITUMUMAB
     Indication: COLON CANCER
     Dosage: 6 MG/KG, DAY 1
     Route: 042
     Dates: start: 20170424
  5. FLUOROURACIL. [Concomitant]
     Active Substance: FLUOROURACIL
     Dosage: 1200 MG/M2, DAY 1-2
     Route: 065
     Dates: start: 20170424

REACTIONS (1)
  - Leukopenia [Recovered/Resolved]

NARRATIVE: CASE EVENT DATE: 20170504
